FAERS Safety Report 6915319-X (Version None)
Quarter: 2010Q3

REPORT INFORMATION
  Report Type: 
  Country: None (occurrence: None)
  Receive Date: 20100806
  Receipt Date: 20100806
  Transmission Date: 20110219
  Serious: Yes (Other)
  Sender: FDA-Public Use
  Company Number: None

PATIENT
  Sex: Female
  Weight: 58.9676 kg

DRUGS (2)
  1. FOLLISTIM [Suspect]
     Indication: INFERTILITY
     Dosage: 300 IU 1 X/DAY SQ
     Route: 058
     Dates: start: 20100522, end: 20100528
  2. OVIDREL [Suspect]
     Indication: INFERTILITY
     Dosage: 250 MICROGRAMS 1 SQ
     Route: 058
     Dates: start: 20100528, end: 20100528

REACTIONS (5)
  - DEHYDRATION [None]
  - OVARIAN HYPERSTIMULATION SYNDROME [None]
  - PALPITATIONS [None]
  - VENTRICULAR EXTRASYSTOLES [None]
  - WEIGHT INCREASED [None]
